FAERS Safety Report 21799979 (Version 1)
Quarter: 2022Q4

REPORT INFORMATION
  Report Type: Spontaneous
  Country: US (occurrence: US)
  Receive Date: 20221230
  Receipt Date: 20221230
  Transmission Date: 20230113
  Serious: No
  Sender: FDA-Public Use
  Company Number: US-APOTEX-2022AP016738

PATIENT
  Sex: Female

DRUGS (1)
  1. PAXIL CR [Suspect]
     Active Substance: PAROXETINE HYDROCHLORIDE
     Indication: Bowel movement irregularity
     Dosage: 1 DOSAGE FORM, QD
     Route: 065
     Dates: start: 20221206

REACTIONS (8)
  - Tachyphrenia [Unknown]
  - Pain [Unknown]
  - Irritability [Unknown]
  - Drug interaction [Unknown]
  - Product substitution issue [Unknown]
  - Breast pain [Unknown]
  - Somnolence [Unknown]
  - Constipation [Unknown]

NARRATIVE: CASE EVENT DATE: 20221206
